FAERS Safety Report 15214672 (Version 1)
Quarter: 2018Q3

REPORT INFORMATION
  Report Type: Spontaneous
  Country: US (occurrence: US)
  Receive Date: 20180730
  Receipt Date: 20180730
  Transmission Date: 20181010
  Serious: No
  Sender: FDA-Public Use
  Company Number: US-GLAXOSMITHKLINE-US2018130219

PATIENT
  Age: 47 Year
  Sex: Female

DRUGS (1)
  1. NICODERM CQ [Suspect]
     Active Substance: NICOTINE
     Indication: SMOKING CESSATION THERAPY
     Dosage: UNK
     Dates: start: 20180701

REACTIONS (3)
  - Application site pain [Not Recovered/Not Resolved]
  - Application site reaction [Not Recovered/Not Resolved]
  - Application site urticaria [Not Recovered/Not Resolved]

NARRATIVE: CASE EVENT DATE: 201807
